FAERS Safety Report 6964799-2 (Version None)
Quarter: 2010Q3

REPORT INFORMATION
  Report Type: 
  Country: None (occurrence: None)
  Receive Date: 20100901
  Receipt Date: 20100824
  Transmission Date: 20110219
  Serious: Yes (Hospitalization)
  Sender: FDA-Public Use
  Company Number: 016867

PATIENT
  Sex: Female
  Weight: 86 kg

DRUGS (8)
  1. LORTAB [Suspect]
     Indication: ARTHRALGIA
     Dosage: (1 TAB PRN ORAL)
     Route: 048
     Dates: start: 20100714, end: 20100714
  2. INVESTIGATIONAL DRUG (INVESTIGATIONAL DRUG) [Suspect]
     Indication: OSTEOARTHRITIS
     Dosage: 1 ML EVERY 8 WEEKS, SUBCUTANEOUS
     Route: 058
     Dates: start: 20100512, end: 20100531
  3. OMEPRAZOLE [Concomitant]
  4. IBUPROFEN [Concomitant]
  5. TYLENOL [Concomitant]
  6. VITAMIN D [Concomitant]
  7. METFORMIN [Concomitant]
  8. MACROBID [Concomitant]

REACTIONS (14)
  - AORTIC STENOSIS [None]
  - AORTIC VALVE SCLEROSIS [None]
  - ASPARTATE AMINOTRANSFERASE INCREASED [None]
  - BLOOD ALKALINE PHOSPHATASE INCREASED [None]
  - BRADYCARDIA [None]
  - CHONDROCALCINOSIS [None]
  - HAEMOGLOBIN DECREASED [None]
  - LEFT ATRIAL DILATATION [None]
  - LEFT VENTRICULAR DYSFUNCTION [None]
  - OSTEOPENIA [None]
  - PULMONARY HYPERTENSION [None]
  - SYNCOPE [None]
  - TRICUSPID VALVE INCOMPETENCE [None]
  - VOMITING [None]
